FAERS Safety Report 18594829 (Version 1)
Quarter: 2020Q4

REPORT INFORMATION
  Report Type: Spontaneous
  Country: GB (occurrence: GB)
  Receive Date: 20201209
  Receipt Date: 20201209
  Transmission Date: 20210114
  Serious: Yes (Disabling)
  Sender: FDA-Public Use
  Company Number: GB-MYLANLABS-2020M1099441

PATIENT
  Age: 61 Year
  Sex: Female
  Weight: 71 kg

DRUGS (7)
  1. PRAMIPEXOLE. [Suspect]
     Active Substance: PRAMIPEXOLE
     Indication: PRODUCT USED FOR UNKNOWN INDICATION
     Dosage: 350 MICROGRAM
     Route: 048
     Dates: start: 20200801
  2. PREGABALIN. [Concomitant]
     Active Substance: PREGABALIN
     Dosage: AT NIGHT
     Dates: start: 20200228
  3. ESTRADIOL. [Concomitant]
     Active Substance: ESTRADIOL
     Dosage: APPLY PUMPS
     Dates: start: 20200729
  4. SERTRALINE [Concomitant]
     Active Substance: SERTRALINE HYDROCHLORIDE
     Dosage: 1 DOSAGE FORM, QD
     Dates: start: 20200228
  5. OMEPRAZOLE. [Concomitant]
     Active Substance: OMEPRAZOLE
     Indication: DYSPEPSIA
     Dosage: 2 DOSAGE FORM, QD
     Dates: start: 20200228
  6. SUMATRIPTAN. [Concomitant]
     Active Substance: SUMATRIPTAN
     Dosage: USE AS DIRECTED BUT A MAXIMUM OF 2 WEEKLY
     Dates: start: 20200228
  7. PRAMIPEXOLE. [Concomitant]
     Active Substance: PRAMIPEXOLE
     Dosage: TAKE 1 OR 2 UP TO FOUR OR 5 TIMES A DAY
     Dates: start: 20200228

REACTIONS (1)
  - Obsessive-compulsive disorder [Not Recovered/Not Resolved]

NARRATIVE: CASE EVENT DATE: 20200801
